FAERS Safety Report 14085502 (Version 1)
Quarter: 2017Q4

REPORT INFORMATION
  Report Type: Spontaneous
  Country: GB (occurrence: GB)
  Receive Date: 20171013
  Receipt Date: 20171013
  Transmission Date: 20180321
  Serious: Yes (Hospitalization)
  Sender: FDA-Public Use
  Company Number: PHFR2017GB008129

PATIENT
  Age: 25 Year
  Sex: Male

DRUGS (3)
  1. PARACETAMOL [Concomitant]
     Active Substance: ACETAMINOPHEN
     Indication: PRODUCT USED FOR UNKNOWN INDICATION
     Dosage: UNK UNK, QID (500MG-1G 4 TIMES A DAY)
     Route: 065
  2. PHENOXYMETHYLPENICILLIN (= PENICILLIN V) [Suspect]
     Active Substance: PENICILLIN V
     Indication: TONSILLITIS
     Dosage: 1 G, QID
     Route: 048
     Dates: start: 20170914, end: 20170917
  3. IBUPROFEN. [Concomitant]
     Active Substance: IBUPROFEN
     Indication: PRODUCT USED FOR UNKNOWN INDICATION
     Dosage: 400 MG, 3 TIMES A DAY
     Route: 065

REACTIONS (3)
  - Pruritus [Unknown]
  - Hypoaesthesia [Unknown]
  - Rash [Unknown]

NARRATIVE: CASE EVENT DATE: 20170917
